FAERS Safety Report 4814361-2 (Version None)
Quarter: 2005Q4

REPORT INFORMATION
  Report Type: 
  Country: None (occurrence: None)
  Receive Date: 20051028
  Receipt Date: 20050811
  Transmission Date: 20060501
  Serious: No
  Sender: FDA-Public Use
  Company Number: US-GLAXOSMITHKLINE-A0569846A

PATIENT
  Age: 83 Year
  Sex: Female

DRUGS (5)
  1. ADVAIR DISKUS 100/50 [Suspect]
     Indication: CHRONIC OBSTRUCTIVE PULMONARY DISEASE
     Route: 055
     Dates: start: 20050711
  2. NEXIUM [Concomitant]
  3. NIACIN [Concomitant]
  4. B6 [Concomitant]
  5. ASPIRIN [Concomitant]

REACTIONS (3)
  - BACK PAIN [None]
  - DYSPHONIA [None]
  - SKELETAL MUSCLE ENZYMES [None]
